FAERS Safety Report 8166549 (Version 2)
Quarter: 2013Q2

REPORT INFORMATION
  Report Type: Spontaneous
  Country: US (occurrence: US)
  Receive Date: 20111003
  Receipt Date: 20130419
  Transmission Date: 20140414
  Serious: Yes (Life-Threatening, Hospitalization)
  Sender: FDA-Public Use
  Company Number: US-BAYER-2011-093662

PATIENT
  Age: 26 Year
  Sex: Female

DRUGS (25)
  1. YAZ [Suspect]
  2. YASMIN [Suspect]
  3. OCELLA [Suspect]
  4. CLEOCIN [Concomitant]
     Dosage: 300 MG, UNK
     Route: 048
  5. TRILEPTAL [Concomitant]
     Dosage: 150 MG, BID
     Route: 048
  6. PERCOCET [Concomitant]
     Indication: PAIN
     Dosage: 325 MG, EVERY SIX HOURS AS NEEDED.
     Route: 048
  7. PERCOCET [Concomitant]
     Indication: PAIN
     Dosage: 5 MG,EVERY SIX HOURS AS NEEDED.
     Route: 048
  8. DESYREL [Concomitant]
     Dosage: 50 MG, HS
     Route: 048
  9. BUSPAR [Concomitant]
     Dosage: 10 MG, TID
     Route: 048
  10. INDERAL [Concomitant]
     Indication: ANXIETY
     Dosage: 10 MG, BID, PRN
     Route: 048
  11. INDERAL [Concomitant]
     Indication: ANXIETY
  12. DIFLUCAN [Concomitant]
     Dosage: 150 MG, ONCE
     Route: 048
  13. FLAGYL [Concomitant]
     Indication: VAGINITIS BACTERIAL
     Dosage: 500 MG, BID TAKE FOR 7 DAYS.
     Route: 048
  14. LAMICTAL [Concomitant]
     Dosage: 100 MG, ONCE
     Route: 048
  15. SEROQUEL [Concomitant]
     Dosage: 50 MG, HS
     Route: 048
  16. FLEXERIL [Concomitant]
     Indication: MUSCLE SPASMS
     Dosage: 10 MG, TID, PRN
     Route: 048
  17. VICODIN [Concomitant]
     Indication: BACK PAIN
     Dosage: 5-500 MG, EVERY 6 HOURS AS NEEDED.
     Route: 048
  18. VICODIN [Concomitant]
     Indication: BACK PAIN
     Dosage: 500 MG, EVERY 6 HOURS AS NEEDED.
  19. NAPROSYN [Concomitant]
     Dosage: 500 MG, BID, MT
     Route: 048
  20. GLYCOLAX [Concomitant]
     Indication: CONSTIPATION
     Dosage: TAKE 1 PACKET BY MOUTH. TAKE 1- 2 TIMES PER DAY X 1 WEEK AND THEN EVERY OTHER DAY X 1 WEEK THEN PRN
     Route: 048
  21. PSYLLIUM [Concomitant]
     Dosage: 1 PACKET DAILY
     Route: 048
  22. BACTRIM DS [Concomitant]
     Indication: URINARY TRACT INFECTION
     Dosage: 800-160 MG, BID
     Route: 048
  23. BACTRIM DS [Concomitant]
     Indication: URINARY TRACT INFECTION
  24. SEPTRA DS [Concomitant]
     Indication: URINARY TRACT INFECTION
     Dosage: 800-160 MG BY MOUTH BID
     Route: 048
  25. NITRO [Concomitant]
     Route: 060

REACTIONS (6)
  - Pulmonary embolism [Recovered/Resolved]
  - Injury [Recovered/Resolved]
  - Pain [Recovered/Resolved]
  - General physical health deterioration [None]
  - Anxiety [None]
  - Anhedonia [None]
